FAERS Safety Report 13127898 (Version 1)
Quarter: 2017Q1

REPORT INFORMATION
  Report Type: Spontaneous
  Country: US (occurrence: US)
  Receive Date: 20170118
  Receipt Date: 20170118
  Transmission Date: 20170428
  Serious: No
  Sender: FDA-Public Use
  Company Number: US-NOVOPROD-514541

PATIENT
  Age: 55 Year
  Sex: Male

DRUGS (2)
  1. HUMULIN N [Concomitant]
     Active Substance: INSULIN HUMAN
     Indication: TYPE 2 DIABETES MELLITUS
  2. TRESIBA [Suspect]
     Active Substance: INSULIN DEGLUDEC
     Indication: TYPE 2 DIABETES MELLITUS
     Dosage: 10 U QD
     Route: 058
     Dates: start: 20160930

REACTIONS (6)
  - Hypopnoea [Recovered/Resolved]
  - Peripheral swelling [Recovered/Resolved]
  - Muscle twitching [Recovered/Resolved]
  - Dry mouth [Not Recovered/Not Resolved]
  - Pruritus [Recovered/Resolved]
  - Lip swelling [Recovered/Resolved]

NARRATIVE: CASE EVENT DATE: 20160930
